FAERS Safety Report 10152058 (Version 1)
Quarter: 2014Q2

REPORT INFORMATION
  Report Type: Spontaneous
  Country: US (occurrence: US)
  Receive Date: 20140505
  Receipt Date: 20140505
  Transmission Date: 20141212
  Serious: No
  Sender: FDA-Public Use
  Company Number: US-BRISTOL-MYERS SQUIBB COMPANY-20544912

PATIENT
  Age: 56 Year
  Sex: Female

DRUGS (5)
  1. FARXIGA [Suspect]
     Dates: start: 2014
  2. BYETTA [Concomitant]
  3. JANUVIA [Concomitant]
  4. LIPITOR [Concomitant]
  5. DIOVAN [Concomitant]

REACTIONS (1)
  - Thirst [Unknown]
